FAERS Safety Report 4443756-4 (Version None)
Quarter: 2004Q3

REPORT INFORMATION
  Report Type: 
  Country: None (occurrence: None)
  Receive Date: 20040908
  Receipt Date: 20020429
  Transmission Date: 20050211
  Serious: Yes (Other)
  Sender: FDA-Public Use
  Company Number: CVAT2002US00554

PATIENT
  Age: 77 Year
  Sex: Female

DRUGS (4)
  1. MIOCHOL-E [Suspect]
     Indication: MIOSIS
     Dosage: UNK, ONCE/SINGLE
     Dates: start: 20020425, end: 20020425
  2. VERAPAMIL [Concomitant]
  3. PROVERA [Concomitant]
  4. CONJUGATED ESTROGEN [Concomitant]

REACTIONS (14)
  - ANTERIOR CHAMBER INFLAMMATION [None]
  - ASTIGMATISM [None]
  - CORNEAL DEGENERATION [None]
  - CORNEAL OEDEMA [None]
  - CORNEAL OPACITY [None]
  - CORNEAL TRANSPLANT [None]
  - DISCOMFORT [None]
  - HYPERTENSION [None]
  - INTRAOCULAR PRESSURE INCREASED [None]
  - MYDRIASIS [None]
  - PAIN [None]
  - PHOTOPHOBIA [None]
  - VISUAL ACUITY REDUCED [None]
  - VISUAL DISTURBANCE [None]
